FAERS Safety Report 21492209 (Version 1)
Quarter: 2022Q4

REPORT INFORMATION
  Report Type: Report from Study
  Country: US (occurrence: US)
  Receive Date: 20221021
  Receipt Date: 20221021
  Transmission Date: 20230112
  Serious: Yes (Other)
  Sender: FDA-Public Use
  Company Number: US-BoehringerIngelheim-2021-BI-144103

PATIENT
  Age: 46 Year
  Sex: Female

DRUGS (3)
  1. OFEV [Suspect]
     Active Substance: NINTEDANIB
     Indication: Idiopathic pulmonary fibrosis
     Route: 048
     Dates: start: 20211201
  2. OFEV [Suspect]
     Active Substance: NINTEDANIB
     Indication: Interstitial lung disease
     Dosage: 2 CAPSULE
     Dates: start: 202112
  3. OFEV [Suspect]
     Active Substance: NINTEDANIB
     Dates: end: 202210

REACTIONS (12)
  - Polymyositis [Unknown]
  - Diarrhoea [Unknown]
  - Accidental overdose [Recovered/Resolved]
  - Nausea [Recovered/Resolved]
  - Diarrhoea [Recovered/Resolved]
  - Nausea [Unknown]
  - Gastrointestinal disorder [Unknown]
  - Abdominal pain upper [Unknown]
  - Decreased appetite [Not Recovered/Not Resolved]
  - Feeling abnormal [Unknown]
  - Chromaturia [Unknown]
  - Malaise [Unknown]

NARRATIVE: CASE EVENT DATE: 20211201
